FAERS Safety Report 8530711 (Version 8)
Quarter: 2013Q4

REPORT INFORMATION
  Report Type: Spontaneous
  Country: TR (occurrence: TR)
  Receive Date: 20120425
  Receipt Date: 20131022
  Transmission Date: 20140711
  Serious: Yes (Other)
  Sender: FDA-Public Use
  Company Number: TR-AMGEN-TURSP2012008370

PATIENT
  Age: 57 Year
  Sex: Female

DRUGS (2)
  1. ENBREL [Suspect]
     Indication: RHEUMATOID ARTHRITIS
     Dosage: 50 MG, WEEKLY
     Route: 058
     Dates: start: 20120109
  2. CORTISONE [Suspect]
     Indication: PRODUCT USED FOR UNKNOWN INDICATION
     Dosage: UNK
     Route: 065
     Dates: start: 201110

REACTIONS (17)
  - Swelling [Not Recovered/Not Resolved]
  - Cartilage atrophy [Not Recovered/Not Resolved]
  - Calcinosis [Recovered/Resolved]
  - Osteolysis [Not Recovered/Not Resolved]
  - Injection site injury [Not Recovered/Not Resolved]
  - Joint range of motion decreased [Unknown]
  - Red blood cell sedimentation rate increased [Recovering/Resolving]
  - Condition aggravated [Recovering/Resolving]
  - Local swelling [Not Recovered/Not Resolved]
  - Gait disturbance [Unknown]
  - Cartilage injury [Unknown]
  - Arthropathy [Not Recovered/Not Resolved]
  - Muscular weakness [Not Recovered/Not Resolved]
  - Abscess [Not Recovered/Not Resolved]
  - Injection site pruritus [Not Recovered/Not Resolved]
  - Injection site erythema [Not Recovered/Not Resolved]
  - Injection site vesicles [Not Recovered/Not Resolved]
